FAERS Safety Report 20527036 (Version 2)
Quarter: 2022Q1

REPORT INFORMATION
  Report Type: Report from Study
  Country: CN (occurrence: CN)
  Receive Date: 20220228
  Receipt Date: 20220323
  Transmission Date: 20220423
  Serious: Yes (Hospitalization)
  Sender: FDA-Public Use
  Company Number: CN-NOVARTISPH-NVSC2021CN244070

PATIENT
  Age: 65 Year
  Sex: Male
  Weight: 82 kg

DRUGS (29)
  1. UNSPECIFIED INGREDIENT [Suspect]
     Active Substance: UNSPECIFIED INGREDIENT
     Indication: Cardiac failure
     Dosage: NO TREATMENT
     Route: 065
  2. ASPIRIN [Concomitant]
     Active Substance: ASPIRIN
     Indication: Arteriosclerosis
     Dosage: 0.1 G, QD
     Route: 048
     Dates: start: 20210608, end: 20210609
  3. ASPIRIN [Concomitant]
     Active Substance: ASPIRIN
     Indication: Psoriasis
  4. CRESTOR [Concomitant]
     Active Substance: ROSUVASTATIN CALCIUM
     Indication: Psoriasis
     Dosage: 10 MG, QD
     Route: 048
     Dates: start: 20210608, end: 20211020
  5. CRESTOR [Concomitant]
     Active Substance: ROSUVASTATIN CALCIUM
     Dosage: 5 MG, QD
     Route: 048
     Dates: start: 20211021
  6. METOPROLOL [Concomitant]
     Active Substance: METOPROLOL
     Indication: Ventricular remodelling
     Dosage: 23.75 MG, QD
     Route: 048
     Dates: start: 20210608, end: 20210609
  7. METOPROLOL [Concomitant]
     Active Substance: METOPROLOL
     Dosage: 47.5 MG, QD
     Route: 048
     Dates: start: 20210609, end: 20211021
  8. METOPROLOL [Concomitant]
     Active Substance: METOPROLOL
     Dosage: 71.25 MG, QD
     Route: 048
     Dates: start: 20211022
  9. DAPAGLIFLOZIN [Concomitant]
     Active Substance: DAPAGLIFLOZIN
     Indication: Blood glucose decreased
     Dosage: 10 MG, QD
     Route: 048
     Dates: start: 20210608
  10. INSULIN NOS [Concomitant]
     Active Substance: INSULIN NOS
     Indication: Diabetes mellitus
     Dosage: 8 IU, QD
     Route: 041
     Dates: start: 20211022, end: 20211022
  11. CLOPIDOGREL BISULFATE [Concomitant]
     Active Substance: CLOPIDOGREL BISULFATE
     Indication: Antiplatelet therapy
     Dosage: 150 MG, QD
     Route: 048
     Dates: start: 20210608, end: 20210611
  12. CLOPIDOGREL BISULFATE [Concomitant]
     Active Substance: CLOPIDOGREL BISULFATE
     Dosage: 75 MG, QD
     Route: 048
     Dates: start: 20210612
  13. FUROSEMIDE [Concomitant]
     Active Substance: FUROSEMIDE
     Indication: Polyuria
     Dosage: 20 MG, QD
     Route: 048
     Dates: start: 20210609, end: 20211021
  14. FUROSEMIDE [Concomitant]
     Active Substance: FUROSEMIDE
     Dosage: 20 MG, BID
     Route: 048
     Dates: start: 20211022
  15. SPIRONOLACTONE [Concomitant]
     Active Substance: SPIRONOLACTONE
     Indication: Polyuria
     Dosage: 20 MG, QD
     Route: 048
     Dates: start: 20210609, end: 20211024
  16. SPIRONOLACTONE [Concomitant]
     Active Substance: SPIRONOLACTONE
     Dosage: 20 MG, BID
     Route: 048
     Dates: start: 20211025
  17. POTASSIUM ASPARTATE AND MAGNESIUM ASPARTATE [Concomitant]
     Indication: Product used for unknown indication
     Dosage: 0.14 G, QD
     Route: 048
     Dates: start: 20210609
  18. POTASSIUM ASPARTATE AND MAGNESIUM ASPARTATE [Concomitant]
     Dosage: 0.28 MG, TID
     Route: 048
     Dates: start: 20211104
  19. AMIODARONE HYDROCHLORIDE [Concomitant]
     Active Substance: AMIODARONE HYDROCHLORIDE
     Indication: Arrhythmia
     Dosage: 200 MG, TID
     Route: 048
     Dates: start: 20210609, end: 20210618
  20. AMIODARONE HYDROCHLORIDE [Concomitant]
     Active Substance: AMIODARONE HYDROCHLORIDE
     Dosage: 200 MG, BID
     Route: 048
     Dates: start: 20210619, end: 20210625
  21. AMIODARONE HYDROCHLORIDE [Concomitant]
     Active Substance: AMIODARONE HYDROCHLORIDE
     Dosage: 200 MG, QD
     Route: 048
     Dates: start: 20210626
  22. AMIODARONE HYDROCHLORIDE [Concomitant]
     Active Substance: AMIODARONE HYDROCHLORIDE
     Dosage: 100 UNK
     Route: 048
     Dates: start: 20211021
  23. TRIMETAZIDINE DIHYDROCHLORIDE [Concomitant]
     Active Substance: TRIMETAZIDINE DIHYDROCHLORIDE
     Indication: Product used for unknown indication
     Dosage: 20 MG, TID
     Route: 048
     Dates: start: 20210609
  24. AMLODIPINE\VALSARTAN [Concomitant]
     Active Substance: AMLODIPINE\VALSARTAN
     Indication: Product used for unknown indication
     Dosage: 85 MG, QD
     Route: 048
     Dates: start: 20210609, end: 20210626
  25. AMLODIPINE\VALSARTAN [Concomitant]
     Active Substance: AMLODIPINE\VALSARTAN
     Dosage: 42.5 MG, QD
     Route: 048
     Dates: start: 20210627, end: 20210628
  26. VALSARTAN [Concomitant]
     Active Substance: VALSARTAN
     Indication: Product used for unknown indication
     Dosage: 80 MG, QD
     Route: 048
     Dates: start: 20210629, end: 20211022
  27. PHOSPHOLIPID [Concomitant]
     Active Substance: PHOSPHOLIPID
     Indication: Prophylaxis
     Dosage: 456 MG, TID
     Route: 048
     Dates: start: 20211025
  28. IRBESARTAN [Concomitant]
     Active Substance: IRBESARTAN
     Indication: Product used for unknown indication
     Dosage: 75 MG, QD
     Route: 048
     Dates: start: 20211104
  29. ATORVASTATIN CALCIUM [Concomitant]
     Active Substance: ATORVASTATIN CALCIUM
     Indication: Psoriasis
     Dosage: 10 MG, QD
     Route: 048
     Dates: start: 20211108

REACTIONS (1)
  - Cardiac failure [Recovered/Resolved]

NARRATIVE: CASE EVENT DATE: 20211103
